FAERS Safety Report 6912916-2 (Version None)
Quarter: 2010Q3

REPORT INFORMATION
  Report Type: 
  Country: None (occurrence: None)
  Receive Date: 20100806
  Receipt Date: 20090320
  Transmission Date: 20110219
  Serious: No
  Sender: FDA-Public Use
  Company Number: US-PFIZER INC-2009153475

PATIENT
  Sex: Male
  Weight: 88.45 kg

DRUGS (1)
  1. DILANTIN-125 [Suspect]
     Indication: TINNITUS
     Dosage: 100 MG, 1X/DAY
     Route: 048
     Dates: start: 20090103, end: 20090103

REACTIONS (1)
  - NERVOUS SYSTEM DISORDER [None]
